FAERS Safety Report 7003950-5 (Version None)
Quarter: 2010Q3

REPORT INFORMATION
  Report Type: 
  Country: None (occurrence: None)
  Receive Date: 20100920
  Receipt Date: 20100106
  Transmission Date: 20110219
  Serious: No
  Sender: FDA-Public Use
  Company Number: US-WYE-H12897210

PATIENT
  Sex: Female
  Weight: 74.91 kg

DRUGS (3)
  1. PRISTIQ [Suspect]
     Indication: DEPRESSION
     Route: 048
     Dates: start: 20090901, end: 20091227
  2. REGLAN [Concomitant]
  3. WELLBUTRIN [Concomitant]

REACTIONS (5)
  - DRUG WITHDRAWAL SYNDROME [None]
  - IRRITABILITY [None]
  - MOOD ALTERED [None]
  - NAUSEA [None]
  - TINNITUS [None]
